FAERS Safety Report 8216098-9 (Version None)
Quarter: 2012Q1

REPORT INFORMATION
  Report Type: 
  Country: None (occurrence: None)
  Receive Date: 20120316
  Receipt Date: 20120312
  Transmission Date: 20120608
  Serious: Yes (Hospitalization, Other)
  Sender: FDA-Public Use
  Company Number: US-BAYER-2011-077145

PATIENT
  Age: 40 Year
  Sex: Female
  Weight: 108.84 kg

DRUGS (8)
  1. OXYCODONE HCL AND ACETAMINOPHEN [Concomitant]
     Dosage: 5MG /325 MG
     Route: 048
     Dates: start: 20071104
  2. YAZ [Suspect]
     Dosage: UNK
     Route: 048
     Dates: start: 20070701, end: 20071201
  3. DIAZEPAM [Concomitant]
     Dosage: UNK
     Route: 048
     Dates: start: 20071015
  4. NAPROXEN [Concomitant]
     Dosage: 375 MG, UNK
     Dates: start: 20071104
  5. MULTI-VITAMINS [Concomitant]
     Route: 048
  6. MISOPROSTOL [Concomitant]
     Dosage: UNK
     Dates: start: 20071015
  7. SIMVASTATIN [Concomitant]
     Indication: BLOOD PRESSURE ABNORMAL
     Dosage: 200 UNK, UNK
     Route: 048
  8. PREMARIN [Concomitant]
     Dosage: UNK

REACTIONS (3)
  - DEEP VEIN THROMBOSIS [None]
  - PAIN [None]
  - MENTAL DISORDER [None]
